FAERS Safety Report 11071603 (Version 1)
Quarter: 2015Q2

REPORT INFORMATION
  Report Type: Spontaneous
  Country: US (occurrence: None)
  Receive Date: 20150427
  Receipt Date: 20150427
  Transmission Date: 20150821
  Serious: Yes (Hospitalization)
  Sender: FDA-Public Use
  Company Number: None

PATIENT
  Age: 66 Year
  Sex: Female
  Weight: 87.54 kg

DRUGS (18)
  1. RITATRIPTAN [Concomitant]
  2. CLOBETASOL OINTMENT [Concomitant]
  3. CALCIUM [Concomitant]
     Active Substance: CALCIUM
  4. DIOVAN HCT [Concomitant]
     Active Substance: HYDROCHLOROTHIAZIDE\VALSARTAN
  5. PROPRANOL [Concomitant]
     Active Substance: PROPRANOLOL HYDROCHLORIDE
  6. PHENEGREN [Concomitant]
  7. MAGNESIUM [Concomitant]
     Active Substance: MAGNESIUM
  8. TYLENOL [Concomitant]
     Active Substance: ACETAMINOPHEN
  9. NEXIUM [Concomitant]
     Active Substance: ESOMEPRAZOLE MAGNESIUM
  10. TIZANDINE [Concomitant]
  11. ULTIMATE FLORA (PROBIOTIC) [Concomitant]
  12. MOBIC [Concomitant]
     Active Substance: MELOXICAM
  13. FLORINAL [Concomitant]
  14. VOLTAREN [Concomitant]
     Active Substance: DICLOFENAC SODIUM
  15. ROPINIROLE. [Suspect]
     Active Substance: ROPINIROLE
     Indication: RESTLESS LEGS SYNDROME
     Dosage: 1-2 PILLS; 1 PILL I DAY
     Route: 048
     Dates: start: 20150414
  16. XANAX [Concomitant]
     Active Substance: ALPRAZOLAM
  17. TRAMADOL [Concomitant]
     Active Substance: TRAMADOL
  18. VITAMIN D3 [Concomitant]
     Active Substance: CHOLECALCIFEROL

REACTIONS (4)
  - Headache [None]
  - Nausea [None]
  - Diarrhoea [None]
  - Vomiting [None]

NARRATIVE: CASE EVENT DATE: 20150414
